FAERS Safety Report 8649652 (Version 3)
Quarter: 2013Q1

REPORT INFORMATION
  Report Type: Spontaneous
  Country: FR (occurrence: FR)
  Receive Date: 20120705
  Receipt Date: 20130114
  Transmission Date: 20140127
  Serious: Yes (Hospitalization, Other)
  Sender: FDA-Public Use
  Company Number: PHHY2012FR056854

PATIENT
  Age: 59 Year
  Sex: Male

DRUGS (5)
  1. TEGRETOL [Suspect]
     Indication: EPILEPSY
     Dosage: 200 MG, BID
     Route: 048
     Dates: end: 20120613
  2. FLUDEX [Interacting]
     Indication: HYPERTENSION
     Dosage: 1.5 MG/DAY
     Dates: start: 20120325, end: 20120613
  3. CRESTOR [Concomitant]
     Dosage: 5 MG, QD
     Route: 048
     Dates: start: 20120325
  4. INEXIUM [Concomitant]
     Dosage: 20 MG, QD
     Route: 048
     Dates: start: 20120325
  5. KARDEGIC [Concomitant]
     Dosage: 75 MG, QD
     Route: 048
     Dates: start: 20120325

REACTIONS (3)
  - Hypokalaemia [Recovered/Resolved]
  - Hyponatraemia [Recovered/Resolved]
  - Drug interaction [Unknown]
